FAERS Safety Report 12644034 (Version 2)
Quarter: 2016Q3

REPORT INFORMATION
  Report Type: Spontaneous
  Country: JP (occurrence: JP)
  Receive Date: 20160811
  Receipt Date: 20160923
  Transmission Date: 20161109
  Serious: Yes (Other)
  Sender: FDA-Public Use
  Company Number: JP-TEVA-683270ISR

PATIENT
  Age: 78 Year
  Sex: Male

DRUGS (4)
  1. METHOTREXATE. [Suspect]
     Active Substance: METHOTREXATE
  2. CARBOPLATIN. [Suspect]
     Active Substance: CARBOPLATIN
  3. EPIRUBICIN [Suspect]
     Active Substance: EPIRUBICIN
  4. VINBLASTINE [Suspect]
     Active Substance: VINBLASTINE

REACTIONS (1)
  - Major depression [Unknown]
